FAERS Safety Report 12269349 (Version 1)
Quarter: 2016Q2

REPORT INFORMATION
  Report Type: Spontaneous
  Country: US (occurrence: US)
  Receive Date: 20160414
  Receipt Date: 20160414
  Transmission Date: 20160815
  Serious: Yes (Other)
  Sender: FDA-Public Use
  Company Number: US-BAYER-2016-066300

PATIENT
  Age: 33 Year
  Sex: Female

DRUGS (2)
  1. MIRENA [Suspect]
     Active Substance: LEVONORGESTREL
     Indication: CONTRACEPTION
     Dosage: 20 MCG/24HR, CONT
     Route: 015
     Dates: start: 20080828, end: 20131001
  2. MIRENA [Suspect]
     Active Substance: LEVONORGESTREL
     Indication: CONTRACEPTION
     Dosage: 20 MCG/24HR, CONT
     Route: 015
     Dates: start: 2003, end: 2007

REACTIONS (9)
  - Device issue [None]
  - Anxiety [None]
  - Fear [None]
  - Infertility female [None]
  - Device use error [None]
  - Genital haemorrhage [None]
  - Scar [None]
  - Injury [None]
  - Embedded device [None]

NARRATIVE: CASE EVENT DATE: 20131001
